FAERS Safety Report 20665382 (Version 1)
Quarter: 2022Q2

REPORT INFORMATION
  Report Type: Spontaneous
  Country: US (occurrence: US)
  Receive Date: 20220402
  Receipt Date: 20220402
  Transmission Date: 20220721
  Serious: Yes (Hospitalization, Other)
  Sender: FDA-Public Use
  Company Number: US-BRISTOL-MYERS SQUIBB COMPANY-2022-011972

PATIENT
  Age: 61 Year
  Sex: Male
  Weight: 81.193 kg

DRUGS (1)
  1. REVLIMID [Suspect]
     Active Substance: LENALIDOMIDE
     Indication: Plasma cell myeloma
     Dosage: 10 MG, QD, 21D ON, 3D OFF
     Route: 048

REACTIONS (2)
  - Urinary tract infection [Unknown]
  - Kidney infection [Unknown]
